FAERS Safety Report 13415668 (Version 2)
Quarter: 2017Q2

REPORT INFORMATION
  Report Type: Spontaneous
  Country: ES (occurrence: ES)
  Receive Date: 20170407
  Receipt Date: 20170501
  Transmission Date: 20170830
  Serious: Yes (Other)
  Sender: FDA-Public Use
  Company Number: ES-NOVOPROD-535125

PATIENT
  Age: 3 Year
  Sex: Female
  Weight: 17 kg

DRUGS (6)
  1. NOVORAPID [Suspect]
     Active Substance: INSULIN ASPART
     Indication: TYPE 1 DIABETES MELLITUS
     Dosage: UNK
     Route: 065
  2. TRESIBA [Suspect]
     Active Substance: INSULIN DEGLUDEC
     Indication: TYPE 1 DIABETES MELLITUS
     Dosage: 5 U, QD
     Route: 065
     Dates: start: 20170215
  3. NOVORAPID [Suspect]
     Active Substance: INSULIN ASPART
     Dosage: 12 U, QD (4.5-4-3.5)
     Route: 065
     Dates: start: 20170316
  4. NOVORAPID [Suspect]
     Active Substance: INSULIN ASPART
     Dosage: 10 U, QD (4.5 U - 3 U - 2.5 U)
     Route: 065
  5. TRESIBA [Suspect]
     Active Substance: INSULIN DEGLUDEC
     Dosage: 4 U, QD (MORNING)
     Route: 065
  6. NOVORAPID [Suspect]
     Active Substance: INSULIN ASPART
     Dosage: 2U OF NOVORAPID IN BOLUS EVERY 2,5HOURS WAS ADMINISTERED (DURING DAY AND THE NIGHT AFTER)
     Route: 065
     Dates: start: 20170313

REACTIONS (3)
  - Hypoglycaemia [Recovered/Resolved]
  - Infection [Unknown]
  - Diabetic ketoacidosis [Recovering/Resolving]

NARRATIVE: CASE EVENT DATE: 20170302
